FAERS Safety Report 25396167 (Version 1)
Quarter: 2025Q2

REPORT INFORMATION
  Report Type: Spontaneous
  Country: ES (occurrence: ES)
  Receive Date: 20250604
  Receipt Date: 20250604
  Transmission Date: 20250717
  Serious: Yes (Hospitalization)
  Sender: MYLAN
  Company Number: None

PATIENT
  Age: 69 Year
  Sex: Female

DRUGS (16)
  1. ALPRAZOLAM [Interacting]
     Active Substance: ALPRAZOLAM
     Indication: Fibromyalgia
     Dosage: 1 MILLIGRAM, QD
     Dates: start: 20250310
  2. ALPRAZOLAM [Interacting]
     Active Substance: ALPRAZOLAM
     Dosage: 1 MILLIGRAM, QD
     Route: 048
     Dates: start: 20250310
  3. ALPRAZOLAM [Interacting]
     Active Substance: ALPRAZOLAM
     Dosage: 1 MILLIGRAM, QD
     Route: 048
     Dates: start: 20250310
  4. ALPRAZOLAM [Interacting]
     Active Substance: ALPRAZOLAM
     Dosage: 1 MILLIGRAM, QD
     Dates: start: 20250310
  5. OLANZAPINE [Interacting]
     Active Substance: OLANZAPINE
     Indication: Fibromyalgia
     Dosage: 5 MILLIGRAM, QD
     Dates: start: 20250310
  6. OLANZAPINE [Interacting]
     Active Substance: OLANZAPINE
     Dosage: 5 MILLIGRAM, QD
     Route: 048
     Dates: start: 20250310
  7. OLANZAPINE [Interacting]
     Active Substance: OLANZAPINE
     Dosage: 5 MILLIGRAM, QD
     Route: 048
     Dates: start: 20250310
  8. OLANZAPINE [Interacting]
     Active Substance: OLANZAPINE
     Dosage: 5 MILLIGRAM, QD
     Dates: start: 20250310
  9. DULOXETINE [Interacting]
     Active Substance: DULOXETINE
     Indication: Fibromyalgia
     Dosage: 120 MILLIGRAM, QD
     Dates: start: 20250310
  10. DULOXETINE [Interacting]
     Active Substance: DULOXETINE
     Dosage: 120 MILLIGRAM, QD
     Route: 048
     Dates: start: 20250310
  11. DULOXETINE [Interacting]
     Active Substance: DULOXETINE
     Dosage: 120 MILLIGRAM, QD
     Route: 048
     Dates: start: 20250310
  12. DULOXETINE [Interacting]
     Active Substance: DULOXETINE
     Dosage: 120 MILLIGRAM, QD
     Dates: start: 20250310
  13. AMIODARONE HYDROCHLORIDE [Interacting]
     Active Substance: AMIODARONE HYDROCHLORIDE
     Indication: Atrial fibrillation
     Dosage: 200 MILLIGRAM, QD
     Dates: start: 20250313, end: 20250320
  14. AMIODARONE HYDROCHLORIDE [Interacting]
     Active Substance: AMIODARONE HYDROCHLORIDE
     Dosage: 200 MILLIGRAM, QD
     Route: 048
     Dates: start: 20250313, end: 20250320
  15. AMIODARONE HYDROCHLORIDE [Interacting]
     Active Substance: AMIODARONE HYDROCHLORIDE
     Dosage: 200 MILLIGRAM, QD
     Route: 048
     Dates: start: 20250313, end: 20250320
  16. AMIODARONE HYDROCHLORIDE [Interacting]
     Active Substance: AMIODARONE HYDROCHLORIDE
     Dosage: 200 MILLIGRAM, QD
     Dates: start: 20250313, end: 20250320

REACTIONS (2)
  - Somnolence [Recovered/Resolved]
  - Drug interaction [Unknown]

NARRATIVE: CASE EVENT DATE: 20250317
